FAERS Safety Report 13707219 (Version 1)
Quarter: 2017Q2

REPORT INFORMATION
  Report Type: Spontaneous
  Country: US (occurrence: US)
  Receive Date: 20170630
  Receipt Date: 20170630
  Transmission Date: 20170830
  Serious: Yes (Other)
  Sender: FDA-Public Use
  Company Number: US-AMGEN-USASP2017099331

PATIENT

DRUGS (1)
  1. REPATHA [Suspect]
     Active Substance: EVOLOCUMAB
     Indication: PRODUCT USED FOR UNKNOWN INDICATION
     Dosage: UNK
     Route: 065

REACTIONS (9)
  - Abnormal dreams [Unknown]
  - Musculoskeletal pain [Unknown]
  - Paraesthesia oral [Unknown]
  - Abdominal pain upper [Unknown]
  - Myalgia [Unknown]
  - Systemic lupus erythematosus [Unknown]
  - Lip swelling [Unknown]
  - Influenza like illness [Unknown]
  - Sleep disorder [Unknown]
